FAERS Safety Report 10210237 (Version 1)
Quarter: 2014Q2

REPORT INFORMATION
  Report Type: Spontaneous
  Country: IT (occurrence: IT)
  Receive Date: 20140602
  Receipt Date: 20140602
  Transmission Date: 20141212
  Serious: Yes (Other)
  Sender: FDA-Public Use
  Company Number: IT-SA-2014SA066131

PATIENT
  Age: 59 Year
  Sex: Female

DRUGS (5)
  1. LANTUS [Suspect]
     Indication: DIABETES MELLITUS
     Route: 058
     Dates: start: 20140101, end: 20140203
  2. HUMALOG [Suspect]
     Indication: DIABETES MELLITUS
     Dosage: DOSE: 38 IU (8 + 15 + 15 IU)
     Route: 058
     Dates: start: 20140101, end: 20140203
  3. ENTUMIN [Concomitant]
     Route: 048
  4. ABILIFY [Concomitant]
     Dosage: DOSE:2 UNIT(S)
     Route: 048
  5. DEPAKIN CHRONO [Concomitant]
     Dosage: DOSE:4 UNIT(S)
     Route: 048

REACTIONS (3)
  - Dizziness postural [Recovering/Resolving]
  - Tremor [Recovering/Resolving]
  - Hypoglycaemia [Recovering/Resolving]
